FAERS Safety Report 7543531-8 (Version None)
Quarter: 2011Q2

REPORT INFORMATION
  Report Type: 
  Country: None (occurrence: None)
  Receive Date: 20110613
  Receipt Date: 20010912
  Transmission Date: 20111010
  Serious: Yes (Hospitalization, Other)
  Sender: FDA-Public Use
  Company Number: PHEH2001US07628

PATIENT

DRUGS (4)
  1. EXELON [Suspect]
     Indication: DEMENTIA ALZHEIMER'S TYPE
     Dosage: 1.5 MG, QD
     Route: 048
     Dates: start: 20010725, end: 20010830
  2. ANTIHYPERTENSIVES [Concomitant]
  3. PERIACTIN [Concomitant]
  4. PROVENTIL GENTLEHALER [Concomitant]

REACTIONS (4)
  - ASTHENIA [None]
  - FALL [None]
  - DYSPNOEA [None]
  - ARRHYTHMIA [None]
